FAERS Safety Report 19221736 (Version 1)
Quarter: 2021Q2

REPORT INFORMATION
  Report Type: Spontaneous
  Country: DE (occurrence: DE)
  Receive Date: 20210505
  Receipt Date: 20210505
  Transmission Date: 20210717
  Serious: Yes (Other)
  Sender: FDA-Public Use
  Company Number: DE-ELI_LILLY_AND_COMPANY-DE202104011366

PATIENT
  Sex: Female

DRUGS (5)
  1. ESCITALOPRAM LUNDBECK [Suspect]
     Active Substance: ESCITALOPRAM OXALATE
     Indication: ANXIETY
     Dosage: 20 MG, UNKNOWN
     Route: 065
     Dates: end: 2016
  2. DULOXETINE HYDROCHLORIDE. [Suspect]
     Active Substance: DULOXETINE HYDROCHLORIDE
     Indication: PRODUCT USED FOR UNKNOWN INDICATION
     Dosage: UNK UNK, UNKNOWN
     Route: 065
     Dates: start: 2016
  3. VITAMIN D [ERGOCALCIFEROL] [Concomitant]
     Active Substance: ERGOCALCIFEROL
     Indication: PRODUCT USED FOR UNKNOWN INDICATION
     Dosage: UNK UNK, UNKNOWN
     Route: 065
  4. ESCITALOPRAM LUNDBECK [Suspect]
     Active Substance: ESCITALOPRAM OXALATE
     Indication: DEPRESSION
     Dosage: 10 MG, UNKNOWN
     Route: 065
     Dates: start: 2006
  5. ESCITALOPRAM LUNDBECK [Suspect]
     Active Substance: ESCITALOPRAM OXALATE
     Indication: PANIC ATTACK

REACTIONS (3)
  - Arrhythmia [Unknown]
  - Therapeutic product effect incomplete [Unknown]
  - Drug level decreased [Unknown]
